FAERS Safety Report 12861008 (Version 1)
Quarter: 2016Q4

REPORT INFORMATION
  Report Type: Spontaneous
  Country: NL (occurrence: NL)
  Receive Date: 20161019
  Receipt Date: 20161019
  Transmission Date: 20170207
  Serious: Yes (Death, Other)
  Sender: FDA-Public Use
  Company Number: NL-ASTRAZENECA-2016SF09100

PATIENT
  Age: 19291 Day
  Sex: Female

DRUGS (5)
  1. FORMETEROL [Concomitant]
     Active Substance: FORMOTEROL
  2. DESLORATONINE [Concomitant]
  3. CREAM [Concomitant]
     Active Substance: UNSPECIFIED INGREDIENT
     Indication: RASH
  4. TAGRISSO [Suspect]
     Active Substance: OSIMERTINIB
     Indication: EGFR GENE MUTATION
     Route: 048
     Dates: start: 20160910, end: 20161005
  5. PULMICORT TURBUHALER [Concomitant]
     Active Substance: BUDESONIDE

REACTIONS (5)
  - Ejection fraction decreased [Unknown]
  - Weight decreased [Unknown]
  - Myocarditis [Unknown]
  - Myositis [Unknown]
  - Hepatitis [Fatal]

NARRATIVE: CASE EVENT DATE: 20161005
